FAERS Safety Report 21540612 (Version 1)
Quarter: 2022Q4

REPORT INFORMATION
  Report Type: Report from Study
  Country: GB (occurrence: GB)
  Receive Date: 20221102
  Receipt Date: 20221102
  Transmission Date: 20230113
  Serious: Yes (Hospitalization)
  Sender: FDA-Public Use
  Company Number: GB-BRISTOL-MYERS SQUIBB COMPANY-2022-128375

PATIENT
  Age: 69 Year
  Sex: Female

DRUGS (1)
  1. ORENCIA [Suspect]
     Active Substance: ABATACEPT
     Indication: Rheumatoid arthritis
     Route: 058
     Dates: start: 201708

REACTIONS (6)
  - Constipation [Unknown]
  - COVID-19 [Unknown]
  - Gallbladder disorder [Unknown]
  - Appendix disorder [Unknown]
  - Psoriasis [Unknown]
  - Chronic obstructive pulmonary disease [Unknown]
